FAERS Safety Report 5629834-2 (Version None)
Quarter: 2008Q1

REPORT INFORMATION
  Report Type: 
  Country: None (occurrence: None)
  Receive Date: 20080214
  Receipt Date: 20080211
  Transmission Date: 20080703
  Serious: Yes (Death)
  Sender: FDA-Public Use
  Company Number: 2008-171970-NL

PATIENT
  Age: 72 Year
  Sex: Female

DRUGS (11)
  1. MIRTAZAPINE [Suspect]
     Dosage: 60 MG ORAL
     Route: 048
     Dates: start: 20070823, end: 20071019
  2. CLOZAPINE [Suspect]
     Dates: start: 20070913, end: 20070920
  3. CLOZAPINE [Suspect]
     Dates: start: 20070921, end: 20070926
  4. CLOZAPINE [Suspect]
     Dates: start: 20070927, end: 20071001
  5. CLOZAPINE [Suspect]
     Dates: start: 20071002, end: 20071006
  6. CLOZAPINE [Suspect]
     Dates: start: 20071007, end: 20071009
  7. LEVOTHYROXINE SODIUM [Concomitant]
  8. RAMIPRIL [Concomitant]
  9. HEXACHLOROPHENE [Concomitant]
  10. AMLODIPINE [Concomitant]
  11. REPAGLINIDE [Concomitant]

REACTIONS (3)
  - AGRANULOCYTOSIS [None]
  - DIVERTICULITIS [None]
  - SEPSIS [None]
